FAERS Safety Report 9113646 (Version 1)
Quarter: 2013Q1

REPORT INFORMATION
  Report Type: Spontaneous
  Country: US (occurrence: US)
  Receive Date: 20130208
  Receipt Date: 20130208
  Transmission Date: 20140127
  Serious: No
  Sender: FDA-Public Use
  Company Number: US-ROCHE-1184719

PATIENT
  Sex: Male
  Weight: 5 kg

DRUGS (1)
  1. TAMIFLU [Suspect]
     Indication: INFLUENZA
     Route: 065

REACTIONS (5)
  - Overdose [Unknown]
  - Crying [Unknown]
  - Diarrhoea [Unknown]
  - Malaise [Unknown]
  - Feeling abnormal [Unknown]
